FAERS Safety Report 6548467-7 (Version None)
Quarter: 2010Q1

REPORT INFORMATION
  Report Type: 
  Country: None (occurrence: None)
  Receive Date: 20100124
  Receipt Date: 20090716
  Transmission Date: 20100710
  Serious: No
  Sender: FDA-Public Use
  Company Number: US-ALLERGAN-0909991US

PATIENT
  Sex: Female

DRUGS (6)
  1. RESTASIS [Suspect]
     Indication: DRY EYE
  2. PULMICORT RESPULES [Concomitant]
     Dosage: UNK, UNK
  3. NAMENDA [Concomitant]
  4. SINGULAIR [Concomitant]
  5. BROVANA [Concomitant]
  6. SERTRALINE HCL [Concomitant]

REACTIONS (1)
  - EYE IRRITATION [None]
